FAERS Safety Report 10485432 (Version 2)
Quarter: 2014Q3

REPORT INFORMATION
  Report Type: Spontaneous
  Country: JP (occurrence: JP)
  Receive Date: 20140930
  Receipt Date: 20140930
  Transmission Date: 20150326
  Serious: Yes (Other)
  Sender: FDA-Public Use
  Company Number: JP-009507513-1409JPN004691

PATIENT
  Age: 70 Year
  Sex: Male
  Weight: 35 kg

DRUGS (24)
  1. ASPARA CA [Concomitant]
     Indication: PLASMA CELL MYELOMA
     Dosage: 400 MG, TID
     Route: 048
     Dates: start: 20130403, end: 20140421
  2. BENAMBAX [Concomitant]
     Active Substance: PENTAMIDINE
     Indication: PNEUMOCYSTIS JIROVECII PNEUMONIA
     Dosage: 180 MG, QD
     Route: 051
     Dates: start: 20140414
  3. MEROPEN [Concomitant]
     Active Substance: MEROPENEM
     Indication: PLASMA CELL MYELOMA
     Dosage: 0.5 MG, QID
     Route: 051
     Dates: start: 20140416
  4. LASIX [Concomitant]
     Active Substance: FUROSEMIDE
     Indication: CARDIAC FAILURE
     Dosage: 20 MG, TID
     Route: 051
     Dates: start: 20140416
  5. PREDONINE [Concomitant]
     Active Substance: PREDNISOLONE\PREDNISOLONE ACETATE\PREDNISOLONE SODIUM SUCCINATE
     Indication: PLASMA CELL MYELOMA
     Dosage: 10 MG, QD
     Route: 048
     Dates: start: 20130103, end: 20140421
  6. MAGLAX (MAGNESIUM OXIDE) [Concomitant]
     Active Substance: MAGNESIUM OXIDE
     Indication: GASTRIC CANCER
     Dosage: 330 MG, TID
     Route: 048
     Dates: start: 20140117, end: 20140421
  7. SOLU-MEDROL [Concomitant]
     Active Substance: METHYLPREDNISOLONE SODIUM SUCCINATE
     Indication: PLASMA CELL MYELOMA
     Dosage: 500 MG, QD
     Route: 051
     Dates: start: 20140416, end: 20140421
  8. BUSCOPAN [Concomitant]
     Active Substance: BUTYLSCOPOLAMINE BROMIDE
     Indication: GASTRIC CANCER
     Dosage: 20 MG, BID
     Route: 051
     Dates: start: 20140420
  9. PRIMPERAN [Concomitant]
     Active Substance: METOCLOPRAMIDE HYDROCHLORIDE
     Indication: GASTRIC CANCER
     Dosage: 10 MG, QD
     Route: 051
     Dates: start: 20140414
  10. MS CONTIN [Concomitant]
     Active Substance: MORPHINE SULFATE
     Indication: PLASMA CELL MYELOMA
     Dosage: 10 MG, BID
     Route: 048
     Dates: start: 20130101
  11. ELASPOL [Concomitant]
     Active Substance: SIVELESTAT SODIUM
     Indication: PNEUMOCYSTIS JIROVECII PNEUMONIA
     Dosage: 100 MG, BID
     Route: 051
     Dates: start: 20140416, end: 20140421
  12. SAXIZON [Concomitant]
     Active Substance: HYDROCORTISONE SODIUM SUCCINATE
     Indication: PLASMA CELL MYELOMA
     Dosage: 100 MG, QD
     Route: 051
     Dates: start: 20140415, end: 20140416
  13. NEUTROGIN [Concomitant]
     Active Substance: LENOGRASTIM
     Indication: PLASMA CELL MYELOMA
     Dosage: 100 MICROGRAM, QD
     Route: 051
     Dates: start: 20140416, end: 20140417
  14. AMOBAN [Concomitant]
     Active Substance: ZOPICLONE
     Indication: INSOMNIA
     Dosage: 7.5 MG, QD
     Route: 048
     Dates: start: 20140417
  15. SANMEL [Concomitant]
     Indication: GASTRIC CANCER
     Dosage: 20 ML, TID
     Route: 048
     Dates: start: 20130103
  16. TAKEPRON [Concomitant]
     Active Substance: LANSOPRAZOLE
     Indication: GASTRIC CANCER
     Dosage: 30 MG, QD
     Route: 048
     Dates: start: 20140415, end: 20140421
  17. DOPAMINE [Concomitant]
     Active Substance: DOPAMINE\DOPAMINE HYDROCHLORIDE
     Indication: CARDIAC FAILURE
     Dosage: 200 MG, QD
     Route: 051
     Dates: start: 20140415
  18. METILON [Concomitant]
     Active Substance: METAMIZOLE SODIUM
     Indication: PNEUMOCYSTIS JIROVECII PNEUMONIA
     Dosage: 250 MG, QD
     Route: 051
     Dates: start: 20140415, end: 20140416
  19. SENNOSIDES [Concomitant]
     Active Substance: SENNOSIDES
     Indication: GASTRIC CANCER
     Dosage: 24 MG, QD
     Route: 048
     Dates: start: 20140226
  20. PREDONINE [Concomitant]
     Active Substance: PREDNISOLONE\PREDNISOLONE ACETATE\PREDNISOLONE SODIUM SUCCINATE
     Indication: DECREASED IMMUNE RESPONSIVENESS
  21. RISUMIC [Concomitant]
     Active Substance: AMEZINIUM METILSULFATE
     Indication: CARDIAC FAILURE
     Dosage: 20 MG, BID
     Route: 048
     Dates: start: 20140123, end: 20140421
  22. PANTOL [Concomitant]
     Active Substance: DEXPANTHENOL
     Indication: GASTRIC CANCER
     Dosage: 500 MG, BID
     Route: 051
     Dates: start: 20140419
  23. CANCIDAS [Suspect]
     Active Substance: CASPOFUNGIN ACETATE
     Indication: INFECTION
     Dosage: 50 MG, QD
     Route: 041
     Dates: start: 20140416, end: 20140421
  24. OMEPRAL [Concomitant]
     Active Substance: OMEPRAZOLE
     Indication: GASTRIC CANCER
     Dosage: 20 MG, QD
     Route: 051
     Dates: start: 20140416

REACTIONS (5)
  - Gastric cancer [Not Recovered/Not Resolved]
  - Liver disorder [Recovered/Resolved]
  - Neutrophil percentage increased [Not Recovered/Not Resolved]
  - Insomnia [Not Recovered/Not Resolved]
  - Inflammation [Not Recovered/Not Resolved]

NARRATIVE: CASE EVENT DATE: 20140416
